FAERS Safety Report 25322276 (Version 1)
Quarter: 2025Q2

REPORT INFORMATION
  Report Type: Spontaneous
  Country: US (occurrence: US)
  Receive Date: 20250516
  Receipt Date: 20250516
  Transmission Date: 20250716
  Serious: No
  Sender: GLAXOSMITHKLINE
  Company Number: US-GSK-US2025AMR058332

PATIENT
  Sex: Female
  Weight: 104.8 kg

DRUGS (1)
  1. NUCALA [Suspect]
     Active Substance: MEPOLIZUMAB
     Indication: Asthma
     Dosage: 1 PUFF(S), Q4W

REACTIONS (3)
  - Pain [Unknown]
  - Headache [Unknown]
  - Drug ineffective [Unknown]
